FAERS Safety Report 8362554-2 (Version None)
Quarter: 2012Q2

REPORT INFORMATION
  Report Type: 
  Country: None (occurrence: None)
  Receive Date: 20120516
  Receipt Date: 20120514
  Transmission Date: 20120825
  Serious: Yes (Life-Threatening, Other)
  Sender: FDA-Public Use
  Company Number: JP-BRACCO-005784

PATIENT
  Sex: Male
  Weight: 74 kg

DRUGS (6)
  1. AMLODIPINE [Concomitant]
  2. IOPAMIDOL [Suspect]
     Indication: COMPUTERISED TOMOGRAM
     Dosage: AT A RATE OF 4.2 ML/SEC
     Route: 042
     Dates: start: 20120309, end: 20120309
  3. PRAVASTATIN SODIUM [Concomitant]
  4. IOPAMIDOL [Suspect]
     Indication: RENAL ARTERY DISSECTION
     Dosage: AT A RATE OF 4.2 ML/SEC
     Route: 042
     Dates: start: 20120309, end: 20120309
  5. RABEPRAZOLE SODIUM [Concomitant]
  6. ACETAMINOPHEN [Concomitant]

REACTIONS (2)
  - ANAPHYLACTIC SHOCK [None]
  - INTESTINAL MUCOSAL HYPERTROPHY [None]
